FAERS Safety Report 20373941 (Version 1)
Quarter: 2022Q1

REPORT INFORMATION
  Report Type: Other
  Country: IL (occurrence: None)
  Receive Date: 20220125
  Receipt Date: 20220125
  Transmission Date: 20220424
  Serious: Yes (Other)
  Sender: FDA-Public Use
  Company Number: IL-ROCHE-3003009

PATIENT

DRUGS (5)
  1. MYCOPHENOLATE MOFETIL [Suspect]
     Active Substance: MYCOPHENOLATE MOFETIL
     Indication: Liver transplant
     Route: 065
  2. CYCLOSPORINE [Suspect]
     Active Substance: CYCLOSPORINE
     Indication: Liver transplant
     Route: 048
  3. AZATHIOPRINE [Suspect]
     Active Substance: AZATHIOPRINE
     Indication: Liver transplant
     Route: 065
  4. TACROLIMUS [Suspect]
     Active Substance: TACROLIMUS
     Indication: Liver transplant
     Route: 065
  5. SIROLIMUS [Suspect]
     Active Substance: SIROLIMUS
     Indication: Liver transplant
     Route: 065

REACTIONS (32)
  - Sepsis [Unknown]
  - Neoplasm malignant [Unknown]
  - Cholangitis [Unknown]
  - Peritonitis [Unknown]
  - Systemic candida [Unknown]
  - Cytomegalovirus infection [Unknown]
  - Cytomegalovirus syndrome [Unknown]
  - Herpes zoster disseminated [Unknown]
  - Pneumonia [Unknown]
  - Pyelonephritis [Unknown]
  - Vascular device infection [Unknown]
  - Vascular device infection [Unknown]
  - Enterococcal infection [Unknown]
  - Enterobacter infection [Unknown]
  - Pneumonia klebsiella [Unknown]
  - Staphylococcal bacteraemia [Unknown]
  - Staphylococcal infection [Unknown]
  - Wound infection staphylococcal [Unknown]
  - Streptococcal bacteraemia [Unknown]
  - Pneumococcal infection [Unknown]
  - Acinetobacter infection [Unknown]
  - Klebsiella infection [Unknown]
  - Pseudomonas infection [Unknown]
  - Escherichia infection [Unknown]
  - Citrobacter infection [Unknown]
  - Corynebacterium infection [Unknown]
  - Serratia infection [Unknown]
  - Providencia infection [Unknown]
  - Candida infection [Unknown]
  - Epstein-Barr virus infection [Unknown]
  - Oral herpes [Unknown]
  - Cystitis [Unknown]
